FAERS Safety Report 13833995 (Version 1)
Quarter: 2017Q3

REPORT INFORMATION
  Report Type: Spontaneous
  Country: US (occurrence: US)
  Receive Date: 20170804
  Receipt Date: 20170804
  Transmission Date: 20171127
  Serious: No
  Sender: FDA-Public Use
  Company Number: US-009507513-1707USA012194

PATIENT
  Sex: Female

DRUGS (3)
  1. ACTONEL [Suspect]
     Active Substance: RISEDRONATE SODIUM
  2. FOSAMAX [Suspect]
     Active Substance: ALENDRONATE SODIUM
     Route: 048
  3. BONIVA [Suspect]
     Active Substance: IBANDRONATE SODIUM

REACTIONS (3)
  - Fall [Unknown]
  - Fracture [Unknown]
  - Gastric disorder [Unknown]
